FAERS Safety Report 18690966 (Version 1)
Quarter: 2021Q1

REPORT INFORMATION
  Report Type: Spontaneous
  Country: US (occurrence: US)
  Receive Date: 20210101
  Receipt Date: 20210101
  Transmission Date: 20210419
  Serious: No
  Sender: FDA-Public Use
  Company Number: NVSC2020US343760

PATIENT
  Age: 79 Year
  Sex: Male
  Weight: 72.57 kg

DRUGS (1)
  1. CAPMATINIB [Suspect]
     Active Substance: CAPMATINIB
     Indication: LUNG NEOPLASM MALIGNANT
     Dosage: 300 MG, BID
     Route: 048
     Dates: start: 20200909

REACTIONS (2)
  - Peripheral swelling [Not Recovered/Not Resolved]
  - Muscle spasms [Not Recovered/Not Resolved]

NARRATIVE: CASE EVENT DATE: 20201109
